FAERS Safety Report 4699611-8 (Version None)
Quarter: 2005Q2

REPORT INFORMATION
  Report Type: 
  Country: None (occurrence: None)
  Receive Date: 20050624
  Receipt Date: 20050610
  Transmission Date: 20051028
  Serious: Yes (Death, Life-Threatening, Hospitalization)
  Sender: FDA-Public Use
  Company Number: SE-JNJFOC-20050401583

PATIENT
  Age: 62 Year
  Sex: Male

DRUGS (8)
  1. REMICADE [Suspect]
     Indication: RHEUMATOID ARTHRITIS
     Route: 042
  2. METFORMIN HCL [Suspect]
     Route: 049
  3. METHOTREXATE [Suspect]
     Indication: RHEUMATOID ARTHRITIS
     Route: 049
  4. FELODIPINE [Concomitant]
  5. ORUDIS RETARD [Concomitant]
  6. FUROSEMIDE [Concomitant]
  7. FOLACIN [Concomitant]
  8. FOLACIN [Concomitant]

REACTIONS (3)
  - DYSPNOEA [None]
  - INFECTION [None]
  - ORGAN FAILURE [None]
